FAERS Safety Report 13672850 (Version 1)
Quarter: 2017Q2

REPORT INFORMATION
  Report Type: Spontaneous
  Country: DE (occurrence: DE)
  Receive Date: 20170621
  Receipt Date: 20170621
  Transmission Date: 20170830
  Serious: Yes (Other)
  Sender: FDA-Public Use
  Company Number: DE-ROCHE-1952109

PATIENT
  Sex: Male

DRUGS (3)
  1. LUCENTIS [Suspect]
     Active Substance: RANIBIZUMAB
     Dosage: UNK
     Route: 065
     Dates: start: 201704
  2. ASPIRIN. [Concomitant]
     Active Substance: ASPIRIN
     Indication: RETINAL VEIN OCCLUSION
     Dosage: 100 MG, UNK
     Route: 065
  3. LUCENTIS [Suspect]
     Active Substance: RANIBIZUMAB
     Indication: RETINAL VEIN OCCLUSION
     Dosage: UNK
     Route: 065
     Dates: start: 201703

REACTIONS (3)
  - Retinal vein occlusion [Unknown]
  - Retinal vein thrombosis [Unknown]
  - Visual acuity reduced [Unknown]
